FAERS Safety Report 9915437 (Version 2)
Quarter: 2014Q2

REPORT INFORMATION
  Report Type: Spontaneous
  Country: US (occurrence: US)
  Receive Date: 20140221
  Receipt Date: 20140610
  Transmission Date: 20141212
  Serious: No
  Sender: FDA-Public Use
  Company Number: US-BIOGENIDEC-2014BI016532

PATIENT
  Age: 72 Year
  Sex: Female

DRUGS (14)
  1. AVONEX [Suspect]
     Indication: MULTIPLE SCLEROSIS
     Route: 030
     Dates: start: 20000101
  2. AVONEX [Suspect]
     Indication: MULTIPLE SCLEROSIS
     Route: 030
     Dates: start: 20120213
  3. ACIDOPHILUS [Concomitant]
  4. AMBIEN [Concomitant]
  5. CALCIUM 600+D [Concomitant]
  6. HYDROCODONE-ACETAMINOPHEN [Concomitant]
  7. LEVOXYL [Concomitant]
  8. OXYCONTIN [Concomitant]
  9. TYLENOL [Concomitant]
  10. VAGIFEM [Concomitant]
  11. VALIUM [Concomitant]
  12. VITAMIN B COMPLEX [Concomitant]
  13. VITAMIN C [Concomitant]
  14. VITAMIN D [Concomitant]

REACTIONS (5)
  - Fall [Recovered/Resolved]
  - Lower limb fracture [Unknown]
  - Musculoskeletal disorder [Not Recovered/Not Resolved]
  - Muscle atrophy [Not Recovered/Not Resolved]
  - Injection site pain [Not Recovered/Not Resolved]
